FAERS Safety Report 8592174-6 (Version None)
Quarter: 2012Q3

REPORT INFORMATION
  Report Type: 
  Country: None (occurrence: None)
  Receive Date: 20120814
  Receipt Date: 20120803
  Transmission Date: 20120928
  Serious: Yes (Life-Threatening, Hospitalization)
  Sender: FDA-Public Use
  Company Number: JP-ELI_LILLY_AND_COMPANY-JP201207005721

PATIENT
  Sex: Male
  Weight: 29 kg

DRUGS (5)
  1. STRATTERA [Suspect]
     Dosage: 10 MG, BID
     Route: 048
     Dates: start: 20120523
  2. STRATTERA [Suspect]
     Dosage: 35 MG, QD
     Route: 048
     Dates: end: 20110920
  3. STRATTERA [Suspect]
     Indication: ATTENTION DEFICIT/HYPERACTIVITY DISORDER
     Dosage: 5 MG, BID
     Route: 048
     Dates: start: 20110706, end: 20120715
  4. STRATTERA [Suspect]
     Dosage: UNK UNK, BID
     Route: 048
     Dates: start: 20120712, end: 20120715
  5. STRATTERA [Suspect]
     Dosage: 5 MG, BID
     Route: 048
     Dates: start: 20120514

REACTIONS (1)
  - ELECTROCARDIOGRAM QT PROLONGED [None]
